FAERS Safety Report 4523207-1 (Version None)
Quarter: 2004Q4

REPORT INFORMATION
  Report Type: 
  Country: None (occurrence: None)
  Receive Date: 20041208
  Receipt Date: 20041122
  Transmission Date: 20050328
  Serious: Yes (Hospitalization)
  Sender: FDA-Public Use
  Company Number: 2004AP05997

PATIENT
  Sex: Female

DRUGS (3)
  1. ANAPEINE [Suspect]
     Indication: EPIDURAL ANAESTHESIA
     Dosage: 4 ML/ HR ED
     Route: 008
     Dates: start: 20041102, end: 20041122
  2. MORPHINE HYDROCHLORIDE [Concomitant]
  3. UNASYN [Concomitant]

REACTIONS (8)
  - ALANINE AMINOTRANSFERASE INCREASED [None]
  - ASPARTATE AMINOTRANSFERASE INCREASED [None]
  - BLOOD BILIRUBIN INCREASED [None]
  - C-REACTIVE PROTEIN INCREASED [None]
  - HEPATIC FUNCTION ABNORMAL [None]
  - INFECTION [None]
  - POSTOPERATIVE WOUND COMPLICATION [None]
  - PURULENCE [None]
